FAERS Safety Report 9897232 (Version 1)
Quarter: 2014Q1

REPORT INFORMATION
  Report Type: Spontaneous
  Country: US (occurrence: US)
  Receive Date: 20140214
  Receipt Date: 20140214
  Transmission Date: 20141002
  Serious: No
  Sender: FDA-Public Use
  Company Number: US-DRREDDYS-USA/USA/13/0036387

PATIENT
  Age: 80 Year
  Sex: Male

DRUGS (2)
  1. ATORVASTATIN TABLETS 80 MG (202357) [Suspect]
     Indication: BLOOD CHOLESTEROL INCREASED
     Route: 048
     Dates: start: 20131020, end: 201311
  2. ATORVASTATIN TABLETS 80 MG (202357) [Suspect]
     Route: 048
     Dates: start: 2013, end: 201312

REACTIONS (1)
  - Feeling abnormal [Recovered/Resolved]
